FAERS Safety Report 10183812 (Version 1)
Quarter: 2014Q2

REPORT INFORMATION
  Report Type: Spontaneous
  Country: US (occurrence: US)
  Receive Date: 20140520
  Receipt Date: 20140520
  Transmission Date: 20141212
  Serious: No
  Sender: FDA-Public Use
  Company Number: US-TEVA-482815USA

PATIENT
  Age: 33 Year
  Sex: Female
  Weight: 79.9 kg

DRUGS (1)
  1. PARAGARD 380A [Suspect]
     Indication: DIAGNOSTIC PROCEDURE
     Route: 015
     Dates: end: 2013

REACTIONS (2)
  - Alopecia [Not Recovered/Not Resolved]
  - Back pain [Recovered/Resolved]
